FAERS Safety Report 5753174-4 (Version None)
Quarter: 2008Q2

REPORT INFORMATION
  Report Type: 
  Country: None (occurrence: None)
  Receive Date: 20080527
  Receipt Date: 20080507
  Transmission Date: 20081010
  Serious: Yes (Hospitalization)
  Sender: FDA-Public Use
  Company Number: ENTC2008-0130

PATIENT
  Age: 46 Year
  Sex: Male

DRUGS (6)
  1. STALEVO 100 [Suspect]
     Indication: PARKINSON'S DISEASE
     Dosage: 5X1 (100) ORAL
     Route: 048
     Dates: start: 20080409, end: 20080411
  2. MYLEPSINIUM [Concomitant]
  3. AKINETON [Concomitant]
  4. SIFROL [Concomitant]
  5. DOMPERIDON [Concomitant]
  6. ISICOM [Concomitant]

REACTIONS (2)
  - RHABDOMYOLYSIS [None]
  - TREMOR [None]
